FAERS Safety Report 23938139 (Version 1)
Quarter: 2024Q2

REPORT INFORMATION
  Report Type: Spontaneous
  Country: JP (occurrence: JP)
  Receive Date: 20240604
  Receipt Date: 20240604
  Transmission Date: 20240717
  Serious: Yes (Other)
  Sender: FDA-Public Use
  Company Number: JP-NAPPMUNDI-GBR-2021-0090694

PATIENT
  Age: 6 Decade
  Sex: Male
  Weight: 57 kg

DRUGS (7)
  1. OXYCONTIN [Suspect]
     Active Substance: OXYCODONE HYDROCHLORIDE
     Indication: Metastases to central nervous system
     Dosage: 10 MILLIGRAM, DAILY
     Route: 048
  2. OXYCONTIN [Suspect]
     Active Substance: OXYCODONE HYDROCHLORIDE
     Indication: Cancer pain
     Dosage: 40 MILLIGRAM, DAILY
     Route: 048
  3. SYMPROIC [Suspect]
     Active Substance: NALDEMEDINE
     Indication: Constipation
     Dosage: 0.2 MILLIGRAM, DAILY
     Route: 048
  4. TAPENTADOL HYDROCHLORIDE [Suspect]
     Active Substance: TAPENTADOL HYDROCHLORIDE
     Indication: Cancer pain
     Dosage: 100 MILLIGRAM, DAILY
     Route: 048
  5. TAPENTADOL HYDROCHLORIDE [Suspect]
     Active Substance: TAPENTADOL HYDROCHLORIDE
     Dosage: 200 MILLIGRAM, DAILY
     Route: 048
  6. HYDROMORPHONE HYDROCHLORIDE [Concomitant]
     Active Substance: HYDROMORPHONE HYDROCHLORIDE
     Indication: Cancer pain
     Dosage: 8 MILLIGRAM, DAILY
     Route: 065
  7. HYDROMORPHONE HYDROCHLORIDE [Concomitant]
     Active Substance: HYDROMORPHONE HYDROCHLORIDE
     Dosage: 18 MILLIGRAM, DAILY
     Route: 065

REACTIONS (6)
  - Nausea [Recovering/Resolving]
  - Inadequate analgesia [Recovering/Resolving]
  - Vomiting [Recovering/Resolving]
  - Drug withdrawal syndrome [Recovering/Resolving]
  - Drug interaction [Unknown]
  - Constipation [Unknown]
